FAERS Safety Report 9995647 (Version 3)
Quarter: 2014Q3

REPORT INFORMATION
  Report Type: Spontaneous
  Country: FR (occurrence: None)
  Receive Date: 20140307
  Receipt Date: 20140708
  Transmission Date: 20150326
  Serious: Yes (Other)
  Sender: FDA-Public Use
  Company Number: 7272108

PATIENT
  Age: 52 Year
  Sex: Male

DRUGS (2)
  1. UVEDOSE (COLECALCIFEROL) (100000 IU (INTERNATIONL UNIT, ORAL SOLUTION) (COLECALCIFEROL)) [Suspect]
     Active Substance: CHOLECALCIFEROL
     Indication: PRODUCT USED FOR UNKNOWN INDICATION
     Dosage: ORAL SOLUTION IN A AMPOLUE (1 DF, 1 IN 2 M)
     Route: 048
  2. LEVOTHYROX [Suspect]
     Active Substance: LEVOTHYROXINE
     Indication: PRODUCT USED FOR UNKNOWN INDICATION
     Route: 048

REACTIONS (3)
  - Hepatocellular injury [None]
  - Cholestasis [None]
  - Hepatic steatosis [None]

NARRATIVE: CASE EVENT DATE: 20140108
